FAERS Safety Report 9807604 (Version 1)
Quarter: 2014Q1

REPORT INFORMATION
  Report Type: Spontaneous
  Country: US (occurrence: US)
  Receive Date: 20140110
  Receipt Date: 20140110
  Transmission Date: 20141002
  Serious: No
  Sender: FDA-Public Use
  Company Number: US-SANOFI-AVENTIS-2013SA052116

PATIENT
  Sex: Male
  Weight: 82 kg

DRUGS (7)
  1. PLAVIX [Suspect]
     Indication: ARTERIAL OCCLUSIVE DISEASE
     Dosage: TAKEN FROM:10 YEARS AGO
     Route: 048
  2. ONGLYZA [Suspect]
     Indication: DIABETES MELLITUS
  3. CRESTOR [Concomitant]
  4. CYMBALTA [Concomitant]
  5. VITAMIN D [Concomitant]
  6. MULTIVITAMINS [Concomitant]
  7. GABAPENTIN [Concomitant]

REACTIONS (1)
  - Hypoglycaemia [Unknown]
